FAERS Safety Report 4716496-1 (Version None)
Quarter: 2005Q3

REPORT INFORMATION
  Report Type: 
  Country: None (occurrence: None)
  Receive Date: 20050714
  Receipt Date: 20050630
  Transmission Date: 20060218
  Serious: Yes (Hospitalization)
  Sender: FDA-Public Use
  Company Number: 215767

PATIENT
  Age: 76 Year
  Sex: Male
  Weight: 39 kg

DRUGS (7)
  1. RITUXAN [Suspect]
     Indication: NON-HODGKIN'S LYMPHOMA
     Dosage: 500 MG, INTRAVENOUS
     Route: 042
     Dates: start: 20050520
  2. KYTRIL [Concomitant]
  3. CYCLOPHOSPHAMIDE [Concomitant]
  4. THERARUBICIN (PIRARUBICIN) [Concomitant]
  5. ONCOVIN [Concomitant]
  6. PREDONINE (PREDNISOLONE SODIUM SUCCINATE, PREDNISOLONE, PREDNISOLONE A [Concomitant]
  7. ISONIAZID [Concomitant]

REACTIONS (2)
  - INTESTINAL OBSTRUCTION [None]
  - NERVE INJURY [None]
